FAERS Safety Report 8186537-0 (Version None)
Quarter: 2012Q1

REPORT INFORMATION
  Report Type: 
  Country: None (occurrence: None)
  Receive Date: 20120302
  Receipt Date: 20120302
  Transmission Date: 20120608
  Serious: No
  Sender: FDA-Public Use
  Company Number: None

PATIENT
  Sex: Male
  Weight: 77.1115 kg

DRUGS (1)
  1. CYCLOBENZAPRINE [Suspect]
     Indication: MUSCLE RELAXANT THERAPY
     Dosage: 10 MG 3 TIMES DAILY
     Dates: start: 20120209, end: 20120219

REACTIONS (3)
  - ADVERSE EVENT [None]
  - PAIN [None]
  - DYSURIA [None]
